FAERS Safety Report 14145491 (Version 1)
Quarter: 2017Q4

REPORT INFORMATION
  Report Type: Spontaneous
  Country: US (occurrence: US)
  Receive Date: 20171030
  Receipt Date: 20171030
  Transmission Date: 20180321
  Serious: No
  Sender: FDA-Public Use
  Company Number: None

PATIENT
  Age: 53 Year
  Sex: Female
  Weight: 52.65 kg

DRUGS (8)
  1. WHOLEFOOD MULTI VITAMIN AND VSL3 (PROBIOTIC) [Concomitant]
  2. ARMOUR THYROID [Concomitant]
     Active Substance: THYROID, PORCINE
  3. DIVIGEL [Concomitant]
     Active Substance: ESTRADIOL
  4. BIOTIN [Concomitant]
     Active Substance: BIOTIN
  5. VITAMIN D3 [Concomitant]
     Active Substance: CHOLECALCIFEROL
  6. LINZESS [Suspect]
     Active Substance: LINACLOTIDE
     Indication: IRRITABLE BOWEL SYNDROME
     Dosage: ?          OTHER STRENGTH:MCG;QUANTITY:1 CAPSULE(S);OTHER ROUTE:30 MINUTES BEFORE MEAL?
  7. PROGESTERONE. [Concomitant]
     Active Substance: PROGESTERONE
  8. VITAMIN C [Concomitant]
     Active Substance: ASCORBIC ACID

REACTIONS (8)
  - Asthenia [None]
  - Chills [None]
  - Swelling face [None]
  - Gastric disorder [None]
  - Constipation [None]
  - Headache [None]
  - Nausea [None]
  - Pain [None]

NARRATIVE: CASE EVENT DATE: 20171028
